FAERS Safety Report 23040407 (Version 1)
Quarter: 2023Q4

REPORT INFORMATION
  Report Type: Spontaneous
  Country: US (occurrence: None)
  Receive Date: 20231006
  Receipt Date: 20231006
  Transmission Date: 20240110
  Serious: Yes (Hospitalization)
  Sender: FDA-Public Use
  Company Number: None

PATIENT
  Age: 83 Year
  Sex: Female
  Weight: 70.7 kg

DRUGS (20)
  1. PROCHLORPERAZINE [Suspect]
     Active Substance: PROCHLORPERAZINE
     Indication: Nausea
     Dosage: OTHER FREQUENCY : EVERY 6 TO 8 HOURS;?
     Route: 048
     Dates: start: 20230906, end: 20230924
  2. PROCHLORPERAZINE [Suspect]
     Active Substance: PROCHLORPERAZINE
     Indication: Vomiting
  3. ACETAMINOPHEN [Concomitant]
     Active Substance: ACETAMINOPHEN
     Dates: start: 20230707
  4. ATORVASTATIN [Concomitant]
     Active Substance: ATORVASTATIN
     Dates: start: 20230913
  5. Miacalcin 200 unit/spray [Concomitant]
  6. Cholecalciferol 25 mcg [Concomitant]
     Dates: start: 20230707
  7. CYANOCOBALAMIN [Concomitant]
     Active Substance: CYANOCOBALAMIN
     Dates: start: 20230707
  8. Diltiazem 240mg (Cardizem CD) [Concomitant]
     Dates: start: 20230707
  9. NOVOLOG [Concomitant]
     Active Substance: INSULIN ASPART
     Dates: start: 20230913
  10. LANTUS SOLOSTAR [Concomitant]
     Active Substance: INSULIN GLARGINE
     Dates: start: 20230913
  11. LEVOTHYROXINE [Concomitant]
     Active Substance: LEVOTHYROXINE
     Dates: start: 20230707
  12. EMLA [Concomitant]
     Active Substance: LIDOCAINE\PRILOCAINE
     Dates: start: 20230918
  13. Creon 24,000-76,000-120,000 [Concomitant]
  14. lisinopril 20 [Concomitant]
     Dates: start: 20230707
  15. METFORMIN HYDROCHLORIDE [Concomitant]
     Active Substance: METFORMIN HYDROCHLORIDE
     Dates: start: 20230707
  16. OLANZAPINE [Concomitant]
     Active Substance: OLANZAPINE
  17. omeprazole 20 [Concomitant]
     Dates: start: 20230707
  18. MIRALAX [Concomitant]
     Active Substance: POLYETHYLENE GLYCOL 3350
     Dates: start: 20230707
  19. PREDNISONE [Concomitant]
     Active Substance: PREDNISONE
  20. MINERALS\VITAMINS [Concomitant]
     Active Substance: MINERALS\VITAMINS
     Dates: start: 20230707

REACTIONS (2)
  - Mental status changes [None]
  - Lethargy [None]

NARRATIVE: CASE EVENT DATE: 20230923
